FAERS Safety Report 19330692 (Version 2)
Quarter: 2021Q2

REPORT INFORMATION
  Report Type: Report from Study
  Country: CA (occurrence: CA)
  Receive Date: 20210528
  Receipt Date: 20210602
  Transmission Date: 20210717
  Serious: Yes (Hospitalization)
  Sender: FDA-Public Use
  Company Number: CA-HLS-202006680

PATIENT
  Age: 69 Year
  Sex: Female

DRUGS (1)
  1. CLOZARIL [Suspect]
     Active Substance: CLOZAPINE
     Indication: PRODUCT USED FOR UNKNOWN INDICATION
     Dosage: UNKNOWN
     Route: 048
     Dates: start: 20160830

REACTIONS (4)
  - Fall [Unknown]
  - Neutrophil count decreased [Unknown]
  - Bedridden [Unknown]
  - Infection [Unknown]

NARRATIVE: CASE EVENT DATE: 20210521
